FAERS Safety Report 6834448-2 (Version None)
Quarter: 2010Q3

REPORT INFORMATION
  Report Type: 
  Country: None (occurrence: None)
  Receive Date: 20100712
  Receipt Date: 20070412
  Transmission Date: 20110219
  Serious: No
  Sender: FDA-Public Use
  Company Number: US-PFIZER INC-2007031397

PATIENT
  Sex: Female
  Weight: 73.48 kg

DRUGS (9)
  1. CHANTIX [Suspect]
     Indication: SMOKING CESSATION THERAPY
     Dates: start: 20070301
  2. ALL OTHER THERAPEUTIC PRODUCTS [Concomitant]
     Indication: BACK PAIN
  3. PERCOCET [Concomitant]
  4. MOTRIN [Concomitant]
  5. TOPROL-XL [Concomitant]
  6. CARDIAC THERAPY [Concomitant]
     Indication: CARDIAC FAILURE CONGESTIVE
  7. ALL OTHER THERAPEUTIC PRODUCTS [Concomitant]
  8. ALL OTHER THERAPEUTIC PRODUCTS [Concomitant]
  9. POTASSIUM [Concomitant]

REACTIONS (3)
  - GLOSSODYNIA [None]
  - ORAL PAIN [None]
  - SLEEP DISORDER [None]
